FAERS Safety Report 9669976 (Version 1)
Quarter: 2013Q4

REPORT INFORMATION
  Report Type: Spontaneous
  Country: SK (occurrence: SK)
  Receive Date: 20131105
  Receipt Date: 20131105
  Transmission Date: 20140711
  Serious: Yes (Other)
  Sender: FDA-Public Use
  Company Number: SK-GLAXOSMITHKLINE-B0938050A

PATIENT
  Age: 33 Year
  Sex: Female

DRUGS (3)
  1. TYVERB [Suspect]
     Indication: BREAST CANCER
     Route: 048
     Dates: start: 20120423
  2. CAPECITABINE [Suspect]
     Indication: BREAST CANCER
     Route: 065
     Dates: start: 20120423
  3. CORTICOSTEROIDS [Concomitant]

REACTIONS (18)
  - Bronchopneumonia [Unknown]
  - Lower respiratory tract infection [Unknown]
  - Interstitial lung disease [Unknown]
  - Skin fissures [Recovering/Resolving]
  - Paronychia [Recovering/Resolving]
  - Weight decreased [Unknown]
  - Cushingoid [Unknown]
  - Muscular weakness [Unknown]
  - Acne [Unknown]
  - Diarrhoea [Recovered/Resolved]
  - Rash [Unknown]
  - Impetigo [Unknown]
  - Rash [Recovering/Resolving]
  - Musculoskeletal chest pain [Unknown]
  - Toxicity to various agents [Unknown]
  - Decreased appetite [Unknown]
  - Asthenia [Unknown]
  - Disease progression [Unknown]
